FAERS Safety Report 18552056 (Version 1)
Quarter: 2020Q4

REPORT INFORMATION
  Report Type: Spontaneous
  Country: GB (occurrence: GB)
  Receive Date: 20201127
  Receipt Date: 20201127
  Transmission Date: 20210114
  Serious: Yes (Other)
  Sender: FDA-Public Use
  Company Number: GB-AUROBINDO-AUR-APL-2020-058173

PATIENT
  Age: 64 Year
  Sex: Female

DRUGS (6)
  1. IMRALDI [Suspect]
     Active Substance: ADALIMUMAB
     Indication: COLITIS ULCERATIVE
     Dosage: 80 MILLIGRAM (WEEK 2)
     Route: 058
  2. IMRALDI [Suspect]
     Active Substance: ADALIMUMAB
     Dosage: 160 MILLIGRAM (WEEK ZERO)
     Route: 058
     Dates: start: 20200709
  3. FLUOXETINE [Suspect]
     Active Substance: FLUOXETINE HYDROCHLORIDE
     Indication: PRODUCT USED FOR UNKNOWN INDICATION
     Dosage: UNK
     Route: 065
  4. PARACETAMOL [Suspect]
     Active Substance: ACETAMINOPHEN
     Indication: PRODUCT USED FOR UNKNOWN INDICATION
     Dosage: UNK
     Route: 065
  5. IMRALDI [Suspect]
     Active Substance: ADALIMUMAB
     Dosage: 40 MILLIGRAM (WEEK 4)
     Route: 058
  6. IMRALDI [Suspect]
     Active Substance: ADALIMUMAB
     Dosage: 40 MILLIGRAM (2 WEEK )
     Route: 058

REACTIONS (25)
  - Injection site erythema [Unknown]
  - Hyperhidrosis [Unknown]
  - Dysphonia [Unknown]
  - Balance disorder [Unknown]
  - Pain [Unknown]
  - Panic attack [Unknown]
  - Depressed mood [Unknown]
  - Condition aggravated [Unknown]
  - Chronic fatigue syndrome [Unknown]
  - Drug interaction [Unknown]
  - Fibromyalgia [Unknown]
  - Joint stiffness [Unknown]
  - Feeling abnormal [Unknown]
  - Colitis ulcerative [Unknown]
  - Poor quality sleep [Unknown]
  - Injection site pruritus [Unknown]
  - Post viral fatigue syndrome [Unknown]
  - Headache [Unknown]
  - Paraesthesia [Unknown]
  - Disorientation [Unknown]
  - Dizziness [Unknown]
  - Fatigue [Unknown]
  - Feeling hot [Unknown]
  - Dyspnoea [Unknown]
  - Nausea [Unknown]

NARRATIVE: CASE EVENT DATE: 20200709
